FAERS Safety Report 22120673 (Version 3)
Quarter: 2025Q1

REPORT INFORMATION
  Report Type: Report from Study
  Country: US (occurrence: US)
  Receive Date: 20230321
  Receipt Date: 20250325
  Transmission Date: 20250409
  Serious: Yes (Hospitalization, Other)
  Sender: TAKEDA
  Company Number: US-TAKEDA-2023TUS028930

PATIENT
  Age: 57 Year
  Sex: Male

DRUGS (32)
  1. TEDUGLUTIDE [Suspect]
     Active Substance: TEDUGLUTIDE
     Indication: Short-bowel syndrome
     Dosage: 5 MILLIGRAM, QD
     Dates: start: 20160614, end: 20161208
  2. TEDUGLUTIDE [Suspect]
     Active Substance: TEDUGLUTIDE
     Dosage: 2.2 MILLIGRAM, QD
     Dates: start: 20190306, end: 20211005
  3. TEDUGLUTIDE [Suspect]
     Active Substance: TEDUGLUTIDE
     Dosage: 2.3 MILLIGRAM, QD
     Dates: start: 20211006, end: 20220216
  4. TEDUGLUTIDE [Suspect]
     Active Substance: TEDUGLUTIDE
     Dosage: 2.2 MILLIGRAM, QD
     Dates: start: 20220216, end: 20230308
  5. TEDUGLUTIDE [Suspect]
     Active Substance: TEDUGLUTIDE
     Dosage: 3.6 MILLIGRAM, QD
     Dates: start: 20230308, end: 20240226
  6. TEDUGLUTIDE [Suspect]
     Active Substance: TEDUGLUTIDE
     Dosage: 3.8 MILLIGRAM, QD
     Dates: start: 20240228
  7. CITRIC ACID, 1-STEARYL ESTER\SODIUM CITRATE [Concomitant]
     Active Substance: CITRIC ACID, 1-STEARYL ESTER\SODIUM CITRATE
     Indication: Renal tubular acidosis
     Dosage: 15.00 MILLILITER, QD
     Dates: start: 20210813
  8. ALPRAZOLAM [Concomitant]
     Active Substance: ALPRAZOLAM
     Indication: Anxiety
  9. CYMBALTA [Concomitant]
     Active Substance: DULOXETINE HYDROCHLORIDE
     Indication: Depression
     Dosage: 60 MILLIGRAM, QD
     Dates: start: 20200910
  10. VITAMIN E [Concomitant]
     Active Substance: .ALPHA.-TOCOPHEROL
     Indication: Nutritional supplementation
     Dosage: UNK UNK, TID
     Dates: start: 20230415
  11. VENLAFAXINE [Concomitant]
     Active Substance: VENLAFAXINE HYDROCHLORIDE
     Indication: Depression
     Dosage: 75 MILLIGRAM, QD
     Dates: start: 20230415
  12. THIAMINE [Concomitant]
     Active Substance: THIAMINE
     Indication: Nutritional supplementation
     Dosage: 100 MILLIGRAM, QD
     Dates: start: 20230415
  13. THIAMINE [Concomitant]
     Active Substance: THIAMINE
     Dosage: 100 MILLIGRAM, QD
     Dates: start: 20240703, end: 20240703
  14. FAMOTIDINE [Concomitant]
     Active Substance: FAMOTIDINE
     Indication: Prophylaxis against gastrointestinal ulcer
     Dosage: 2 MILLILITER, BID
     Dates: start: 20230418
  15. VITAMIN D [Concomitant]
     Active Substance: VITAMIN D NOS
     Indication: Supplementation therapy
     Dosage: 5000 INTERNATIONAL UNIT, BID
     Dates: start: 20170607
  16. GLUTAMINE [Concomitant]
     Active Substance: GLUTAMINE
     Indication: Short-bowel syndrome
     Dosage: 15 MILLIGRAM, BID
     Dates: start: 20171129
  17. LOPERAMIDE [Concomitant]
     Active Substance: LOPERAMIDE
     Indication: Intestinal fistula
     Dosage: 4 MILLIGRAM, QID
     Dates: start: 20191002
  18. CREON [Concomitant]
     Active Substance: PANCRELIPASE AMYLASE\PANCRELIPASE LIPASE\PANCRELIPASE PROTEASE
     Indication: Short-bowel syndrome
     Dosage: 36000 INTERNATIONAL UNIT, BID
     Dates: start: 20190814
  19. CYANOCOBALAMIN [Concomitant]
     Active Substance: CYANOCOBALAMIN
     Indication: Mineral deficiency
     Dosage: 5000 MICROGRAM, 1/WEEK
     Dates: start: 20230418, end: 20230515
  20. ZOFRAN [Concomitant]
     Active Substance: ONDANSETRON HYDROCHLORIDE
     Indication: Nausea
  21. PANTOPRAZOLE [Concomitant]
     Active Substance: PANTOPRAZOLE
     Indication: Gastrooesophageal reflux disease
  22. DIPHENHYDRAMINE [Concomitant]
     Active Substance: DIPHENHYDRAMINE
     Indication: Pruritus
     Dosage: 25 MILLIGRAM, QID
     Dates: start: 20230418, end: 20230421
  23. NALOXONE [Concomitant]
     Active Substance: NALOXONE
     Indication: Respiratory arrest
  24. NALOXONE [Concomitant]
     Active Substance: NALOXONE
  25. ONDANSETRON [Concomitant]
     Active Substance: ONDANSETRON
     Indication: Prophylaxis of nausea and vomiting
     Dosage: 2 MILLILITER, QID
     Dates: start: 20230417
  26. SELENIUM [Concomitant]
     Active Substance: SELENIUM
     Indication: Prophylaxis of nausea and vomiting
     Dosage: 1 MICROGRAM, QID
     Dates: start: 20230417
  27. DEXTROSE [Concomitant]
     Active Substance: DEXTROSE MONOHYDRATE
     Indication: Blood glucose decreased
  28. GLUCAGON [Concomitant]
     Active Substance: GLUCAGON
     Indication: Glucose tolerance impaired
  29. INSULIN LISPRO [Concomitant]
     Active Substance: INSULIN LISPRO
     Indication: Hypoglycaemia
  30. ROSUVASTATIN [Concomitant]
     Active Substance: ROSUVASTATIN
     Indication: Somnolence
     Dosage: 10 MILLIGRAM, QD
     Dates: start: 20230415, end: 20230415
  31. RISPERIDONE [Concomitant]
     Active Substance: RISPERIDONE
     Indication: Antipsychotic therapy
     Dosage: 0.5 MILLIGRAM, BID
     Dates: start: 20230415
  32. Sodium Bicarb.Ped [Concomitant]
     Indication: Nutritional supplementation
     Dosage: 325 MILLIGRAM, TID
     Dates: start: 20240703, end: 20240703

REACTIONS (2)
  - Cervical spinal stenosis [Recovered/Resolved with Sequelae]
  - Myelopathy [Not Recovered/Not Resolved]

NARRATIVE: CASE EVENT DATE: 20230127
